FAERS Safety Report 6338353-X (Version None)
Quarter: 2009Q3

REPORT INFORMATION
  Report Type: 
  Country: None (occurrence: None)
  Receive Date: 20090901
  Receipt Date: 20090817
  Transmission Date: 20100115
  Serious: Yes (Death, Other)
  Sender: FDA-Public Use
  Company Number: 2009EK003930

PATIENT

DRUGS (3)
  1. NICARDIPINE HYDROCHLORIDE [Suspect]
     Indication: HYPERTENSION
     Dosage: IV
     Route: 042
  2. SODIUM NITROPRUSSIDE [Suspect]
     Indication: HYPERTENSION
     Dosage: IV
     Route: 042
  3. NIMODIPINE [Concomitant]

REACTIONS (1)
  - VASOSPASM [None]
